FAERS Safety Report 6745069-4 (Version None)
Quarter: 2010Q2

REPORT INFORMATION
  Report Type: 
  Country: None (occurrence: None)
  Receive Date: 20100527
  Receipt Date: 20100524
  Transmission Date: 20101027
  Serious: Yes (Other)
  Sender: FDA-Public Use
  Company Number: GB-MERCK-1005GBR00083

PATIENT
  Age: 58 Year
  Sex: Female
  Weight: 79 kg

DRUGS (6)
  1. ZOCOR [Suspect]
     Indication: HYPERCHOLESTEROLAEMIA
     Route: 048
     Dates: start: 20030117, end: 20060515
  2. ZOCOR [Suspect]
     Route: 048
     Dates: start: 20060516, end: 20100415
  3. AMLODIPINE [Concomitant]
     Route: 065
  4. BENDROFLUMETHIAZIDE [Concomitant]
     Route: 065
  5. OMEPRAZOLE [Concomitant]
     Route: 065
  6. SERTRALINE HYDROCHLORIDE [Concomitant]
     Route: 065

REACTIONS (3)
  - ABNORMAL BEHAVIOUR [None]
  - MEMORY IMPAIRMENT [None]
  - PSYCHIATRIC SYMPTOM [None]
